FAERS Safety Report 9192181 (Version 1)
Quarter: 2013Q1

REPORT INFORMATION
  Report Type: Spontaneous
  Country: US (occurrence: None)
  Receive Date: 20130326
  Receipt Date: 20130326
  Transmission Date: 20140127
  Serious: No
  Sender: FDA-Public Use
  Company Number: None

PATIENT
  Age: 46 Year
  Sex: Female
  Weight: 99.34 kg

DRUGS (1)
  1. HYDROCODONE/ACETAMINOPHEN [Suspect]
     Dosage: 2 TABLETS EVERY 8 HOURS PO
     Dates: start: 20130323, end: 20130323

REACTIONS (2)
  - Hyperhidrosis [None]
  - Nausea [None]
